FAERS Safety Report 6294405-4 (Version None)
Quarter: 2009Q3

REPORT INFORMATION
  Report Type: 
  Country: None (occurrence: None)
  Receive Date: 20090803
  Receipt Date: 20090728
  Transmission Date: 20100115
  Serious: Yes (Hospitalization)
  Sender: FDA-Public Use
  Company Number: US-ROCHE-644612

PATIENT
  Sex: Female

DRUGS (1)
  1. XELODA [Suspect]
     Indication: BREAST CANCER
     Route: 048
     Dates: start: 20090320, end: 20090501

REACTIONS (1)
  - BREAST MASS [None]
